FAERS Safety Report 24014629 (Version 2)
Quarter: 2024Q3

REPORT INFORMATION
  Report Type: Spontaneous
  Country: JP (occurrence: JP)
  Receive Date: 20240626
  Receipt Date: 20240701
  Transmission Date: 20241016
  Serious: Yes (Other)
  Sender: MERCK
  Company Number: JP-009507513-1508JPN004995

PATIENT
  Sex: Male

DRUGS (1)
  1. BELSOMRA [Suspect]
     Active Substance: SUVOREXANT
     Dosage: UNK UNK,
     Route: 048
     Dates: start: 20150807, end: 20150807

REACTIONS (3)
  - Loss of consciousness [Unknown]
  - Glossoptosis [Unknown]
  - Overdose [Unknown]

NARRATIVE: CASE EVENT DATE: 20150807
